FAERS Safety Report 4292897-3 (Version None)
Quarter: 2004Q1

REPORT INFORMATION
  Report Type: 
  Country: None (occurrence: None)
  Receive Date: 20040212
  Receipt Date: 20030721
  Transmission Date: 20041129
  Serious: Yes (Other)
  Sender: FDA-Public Use
  Company Number: US-GLAXOSMITHKLINE-A0417654A

PATIENT
  Age: 60 Year
  Sex: Female

DRUGS (5)
  1. PAXIL [Suspect]
     Indication: DEPRESSION
     Dosage: 40MG PER DAY
     Route: 048
  2. PRINIVIL [Concomitant]
  3. NEURONTIN [Concomitant]
  4. INSULIN [Concomitant]
  5. COMBIVENT [Concomitant]

REACTIONS (1)
  - CEREBROVASCULAR ACCIDENT [None]
